FAERS Safety Report 5202074-7 (Version None)
Quarter: 2007Q1

REPORT INFORMATION
  Report Type: 
  Country: None (occurrence: None)
  Receive Date: 20070103
  Receipt Date: 20061226
  Transmission Date: 20070707
  Serious: Yes (Hospitalization)
  Sender: FDA-Public Use
  Company Number: HQWYE080202JAN07

PATIENT
  Age: 27 Year
  Sex: Male

DRUGS (2)
  1. PIPERACILLIN AND TAZOBACTAM [Suspect]
     Indication: PNEUMONIA
     Dosage: 4.5 G 3X PER 1 DAY, INTRAVENOUS DRIP
     Route: 041
     Dates: start: 20061219, end: 20061225
  2. VOLTAREN [Concomitant]

REACTIONS (1)
  - PNEUMONITIS [None]
